FAERS Safety Report 18179710 (Version 1)
Quarter: 2020Q3

REPORT INFORMATION
  Report Type: Spontaneous
  Country: US (occurrence: US)
  Receive Date: 20200820
  Receipt Date: 20200820
  Transmission Date: 20201103
  Serious: No
  Sender: FDA-Public Use
  Company Number: None

PATIENT
  Age: 28 Year
  Sex: Female

DRUGS (1)
  1. BUDESONIDE EC 3 MG CAPSULE [Suspect]
     Active Substance: BUDESONIDE
     Indication: CROHN^S DISEASE
     Dosage: ?          QUANTITY:3 CAPSULE(S);?
     Route: 048
     Dates: start: 20200813, end: 20200819

REACTIONS (3)
  - Product substitution issue [None]
  - Condition aggravated [None]
  - Product taste abnormal [None]

NARRATIVE: CASE EVENT DATE: 20200814
